FAERS Safety Report 5187699-X (Version None)
Quarter: 2006Q4

REPORT INFORMATION
  Report Type: 
  Country: None (occurrence: None)
  Receive Date: 20061221
  Receipt Date: 20061212
  Transmission Date: 20070319
  Serious: Yes (Other)
  Sender: FDA-Public Use
  Company Number: PHEH2006US15214

PATIENT
  Sex: Male

DRUGS (2)
  1. DEPAKOTE [Suspect]
     Indication: BIPOLAR II DISORDER
  2. TEGRETOL [Suspect]
     Indication: BIPOLAR II DISORDER

REACTIONS (2)
  - CEREBROVASCULAR ACCIDENT [None]
  - TREMOR [None]
